FAERS Safety Report 24286836 (Version 2)
Quarter: 2024Q4

REPORT INFORMATION
  Report Type: Spontaneous
  Country: US (occurrence: US)
  Receive Date: 20240905
  Receipt Date: 20241204
  Transmission Date: 20250115
  Serious: Yes (Other)
  Sender: ANI
  Company Number: US-ANIPHARMA-2024-US-047179

PATIENT
  Age: 67 Year
  Sex: Female

DRUGS (39)
  1. CORTICOTROPIN [Suspect]
     Active Substance: CORTICOTROPIN
     Indication: Sarcoidosis
     Dosage: 1  MILLILITRE(S) - ML 2 TIMES WEEKLY
     Route: 058
     Dates: start: 20240823
  2. NEXIUM [Concomitant]
     Active Substance: ESOMEPRAZOLE MAGNESIUM
  3. PHENAZOPYRIDINE HCL [Concomitant]
     Active Substance: PHENAZOPYRIDINE HYDROCHLORIDE
  4. PREDNISONE [Concomitant]
     Active Substance: PREDNISONE
     Dosage: CURRENT DOSE 17.5 MG AND TAPERING OFF
  5. PROLIA [Concomitant]
     Active Substance: DENOSUMAB
  6. BACTRIM DS [Concomitant]
     Active Substance: SULFAMETHOXAZOLE\TRIMETHOPRIM
  7. TIZANIDINE HYDROCHLORIDE [Concomitant]
     Active Substance: TIZANIDINE HYDROCHLORIDE
  8. TRELEGY ELLIPTA [Concomitant]
     Active Substance: FLUTICASONE FUROATE\UMECLIDINIUM BROMIDE\VILANTEROL TRIFENATATE
  9. TRIAMCINOLONE ACETONIDE D [Concomitant]
  10. VOLTAREN [Concomitant]
     Active Substance: DICLOFENAC SODIUM
  11. ALPRAZOLAM [Concomitant]
     Active Substance: ALPRAZOLAM
  12. HYQVIA [Concomitant]
     Active Substance: HUMAN IMMUNOGLOBULIN G\HYALURONIDASE (HUMAN RECOMBINANT)
  13. LEUCOVORIN CALCIUM [Concomitant]
     Active Substance: LEUCOVORIN CALCIUM
  14. LEVALBUTEROL TARTRATE [Concomitant]
     Active Substance: LEVALBUTEROL TARTRATE
  15. LOPERAMIDE HYDROCHLORIDE [Concomitant]
     Active Substance: LOPERAMIDE HYDROCHLORIDE
  16. EQ LORATADINE [Concomitant]
  17. FENTANYL [Concomitant]
     Active Substance: FENTANYL
  18. HYDROCORTISONE [Concomitant]
     Active Substance: HYDROCORTISONE
  19. HYDROMORPHONE HCL [Concomitant]
     Active Substance: HYDROMORPHONE HYDROCHLORIDE
  20. MAGNESIUM GLUCONATE [Concomitant]
     Active Substance: MAGNESIUM GLUCONATE
  21. AMBIEN [Concomitant]
     Active Substance: ZOLPIDEM TARTRATE
  22. METHOTREXATE SODIUM [Suspect]
     Active Substance: METHOTREXATE SODIUM
     Dates: start: 20240824
  23. MIRALAX [Concomitant]
     Active Substance: POLYETHYLENE GLYCOL 3350
  24. MOMETASONE FUROATE [Concomitant]
     Active Substance: MOMETASONE FUROATE
  25. NYSTATIN [Concomitant]
     Active Substance: NYSTATIN
  26. OLMESARTAN MEDOXOMIL [Concomitant]
     Active Substance: OLMESARTAN MEDOXOMIL
  27. ONDANSETRON HYDROCHLORIDE [Concomitant]
     Active Substance: ONDANSETRON HYDROCHLORIDE
  28. ESTER-C [Concomitant]
  29. FAMCICLOVIR [Concomitant]
     Active Substance: FAMCICLOVIR
  30. DOCUSATE SODIUM [Concomitant]
     Active Substance: DOCUSATE SODIUM
  31. DULOXETINE HYDROCHLORIDE [Concomitant]
     Active Substance: DULOXETINE HYDROCHLORIDE
  32. FIORICET [Concomitant]
     Active Substance: ACETAMINOPHEN\BUTALBITAL\CAFFEINE
  33. ERYTHROMYCIN [Concomitant]
     Active Substance: ERYTHROMYCIN
  34. DILTIAZEM [Concomitant]
     Active Substance: DILTIAZEM
  35. BENZONATATE [Concomitant]
     Active Substance: BENZONATATE
  36. CYCLOSPORINE [Concomitant]
     Active Substance: CYCLOSPORINE
  37. PROBIOTICS NOS [Concomitant]
     Active Substance: PROBIOTICS NOS
  38. ADDERALL XR [Concomitant]
     Active Substance: AMPHETAMINE ASPARTATE\AMPHETAMINE SULFATE\DEXTROAMPHETAMINE SACCHARATE\DEXTROAMPHETAMINE SULFATE
  39. DICYCLOMINE HYDROCHLORIDE [Concomitant]
     Active Substance: DICYCLOMINE HYDROCHLORIDE

REACTIONS (3)
  - Sarcoidosis [Unknown]
  - Gastrointestinal disorder [Unknown]
  - Condition aggravated [Unknown]

NARRATIVE: CASE EVENT DATE: 20240824
